FAERS Safety Report 9289850 (Version 1)
Quarter: 2013Q2

REPORT INFORMATION
  Report Type: Spontaneous
  Country: CN (occurrence: CN)
  Receive Date: 20130515
  Receipt Date: 20130515
  Transmission Date: 20140414
  Serious: Yes (Other)
  Sender: FDA-Public Use
  Company Number: CN-009507513-1305CHN006800

PATIENT
  Age: 8 Year
  Sex: Male

DRUGS (2)
  1. SINGULAIR (LOCAL DIST) [Suspect]
     Indication: ASTHMA
     Dosage: 5 MG, QD
     Route: 048
     Dates: start: 201209, end: 201212
  2. SINGULAIR (LOCAL DIST) [Suspect]
     Indication: RHINITIS ALLERGIC

REACTIONS (2)
  - Epilepsy [Unknown]
  - Poor quality sleep [Recovering/Resolving]
